FAERS Safety Report 6759788-7 (Version None)
Quarter: 2010Q2

REPORT INFORMATION
  Report Type: 
  Country: None (occurrence: None)
  Receive Date: 20100608
  Receipt Date: 20100602
  Transmission Date: 20101027
  Serious: No
  Sender: FDA-Public Use
  Company Number: US-JNJFOC-20100601437

PATIENT
  Sex: Female
  Weight: 72.58 kg

DRUGS (3)
  1. DURAGESIC-100 [Suspect]
     Indication: PAIN
     Dosage: DOSE: 50 UG/HR+100 UG/HR
     Route: 062
  2. DURAGESIC-100 [Suspect]
     Indication: DRUG USE FOR UNKNOWN INDICATION
     Dosage: DOSE: 50 UG/HR+100 UG/HR
     Route: 062
  3. VICODIN [Concomitant]
     Indication: BREAKTHROUGH PAIN
     Dosage: DOSAGE: 4-6 AS NEEDED
     Route: 048

REACTIONS (2)
  - DRUG INEFFECTIVE [None]
  - WRONG TECHNIQUE IN DRUG USAGE PROCESS [None]
